FAERS Safety Report 8821097 (Version 1)
Quarter: 2012Q4

REPORT INFORMATION
  Report Type: 
  Country: US (occurrence: US)
  Receive Date: 20121002
  Receipt Date: 20121002
  Transmission Date: 20130627
  Serious: Yes (Hospitalization)
  Sender: FDA-Public Use
  Company Number: US-GLAXOSMITHKLINE-A0995107A

PATIENT
  Age: 75 Year
  Sex: Female

DRUGS (16)
  1. ADVAIR [Suspect]
     Indication: CHRONIC OBSTRUCTIVE PULMONARY DISEASE
     Dosage: 1PUFF Twice per day
     Route: 055
  2. MUCINEX [Concomitant]
  3. VENTOLIN [Concomitant]
  4. WARFARIN [Concomitant]
  5. POTASSIUM CHLORIDE [Concomitant]
  6. TRIAMCINOLONE ACETONIDE [Concomitant]
  7. FUROSEMIDE [Concomitant]
  8. ALPRAZOLAM [Concomitant]
  9. PRAVASTATIN [Concomitant]
  10. GABAPENTIN [Concomitant]
  11. ROPINIROLE [Concomitant]
  12. LISINOPRIL [Concomitant]
  13. DILTIAZEM [Concomitant]
  14. BENZONATATE [Concomitant]
  15. IPRATROPIUM [Concomitant]
  16. LORATADINE [Concomitant]

REACTIONS (2)
  - Pneumonia [Recovered/Resolved]
  - Chronic obstructive pulmonary disease [Recovered/Resolved]
